FAERS Safety Report 11056073 (Version 1)
Quarter: 2015Q2

REPORT INFORMATION
  Report Type: Spontaneous
  Country: CA (occurrence: CA)
  Receive Date: 20150422
  Receipt Date: 20150422
  Transmission Date: 20150821
  Serious: Yes (Other)
  Sender: FDA-Public Use
  Company Number: CA-ASTRAZENECA-2015SE35426

PATIENT
  Age: 62 Year
  Sex: Female

DRUGS (2)
  1. PULMICORT TURBUHALER [Suspect]
     Active Substance: BUDESONIDE
     Indication: NASOPHARYNGITIS
     Route: 055
  2. CLARITHROMYCIN. [Suspect]
     Active Substance: CLARITHROMYCIN
     Dosage: NON-AZ PRODUCT, 500 MG TWO TIMES A DAY
     Route: 065

REACTIONS (4)
  - Tongue discolouration [Unknown]
  - Oral candidiasis [Unknown]
  - Swollen tongue [Unknown]
  - Oropharyngeal pain [Unknown]
